FAERS Safety Report 22058352 (Version 2)
Quarter: 2023Q2

REPORT INFORMATION
  Report Type: Spontaneous
  Country: JP (occurrence: JP)
  Receive Date: 20230303
  Receipt Date: 20230410
  Transmission Date: 20230722
  Serious: Yes (Death, Hospitalization, Disabling, Other)
  Sender: FDA-Public Use
  Company Number: JP-GLAXOSMITHKLINE-JP2022JPN018987

PATIENT

DRUGS (5)
  1. DAPRODUSTAT [Suspect]
     Active Substance: DAPRODUSTAT
     Indication: Nephrogenic anaemia
     Dosage: 2 MG, QD
     Route: 048
     Dates: start: 20210827, end: 20220421
  2. AMLODIPINE BESYLATE [Concomitant]
     Active Substance: AMLODIPINE BESYLATE
     Indication: Hypertension
     Dosage: 5 MG, QD
     Route: 048
  3. FUROSEMIDE [Concomitant]
     Active Substance: FUROSEMIDE
     Indication: Chronic kidney disease
     Dosage: 10 MG, QD
     Route: 048
  4. ELOBIXIBAT [Concomitant]
     Active Substance: ELOBIXIBAT
     Indication: Constipation
     Dosage: 5 MG, QD
     Route: 048
     Dates: start: 20210910
  5. HERBALS [Concomitant]
     Active Substance: HERBALS
     Indication: Constipation
     Dosage: 5 G, TID
     Route: 048
     Dates: start: 20211001

REACTIONS (13)
  - Cerebral infarction [Fatal]
  - Vomiting [Unknown]
  - Diarrhoea [Unknown]
  - Loss of consciousness [Unknown]
  - Asthenia [Unknown]
  - Hemiparesis [Unknown]
  - Depressed level of consciousness [Unknown]
  - Pleural effusion [Unknown]
  - Marasmus [Fatal]
  - Dysphagia [Unknown]
  - Hyperglycaemia [Unknown]
  - Dehydration [Unknown]
  - Iron deficiency anaemia [Recovering/Resolving]

NARRATIVE: CASE EVENT DATE: 20220325
